FAERS Safety Report 9908091 (Version 1)
Quarter: 2014Q1

REPORT INFORMATION
  Report Type: Spontaneous
  Country: US (occurrence: None)
  Receive Date: 20140212
  Receipt Date: 20140212
  Transmission Date: 20141002
  Serious: Yes (Hospitalization)
  Sender: FDA-Public Use
  Company Number: None

PATIENT
  Age: 73 Year
  Sex: Female
  Weight: 81.65 kg

DRUGS (20)
  1. COMBIGAN [Suspect]
     Indication: CORNEAL IMPLANT
     Dosage: 2.5. ML STALLILE ?1 DROP NITE ?1 DROP NITE  LEFTN EYE.?EYE LEFT
     Dates: start: 20130205, end: 20140127
  2. COMBIGAN [Suspect]
     Dosage: 2.5. ML STALLILE ?1 DROP NITE ?1 DROP NITE  LEFTN EYE.?EYE LEFT
     Dates: start: 20130205, end: 20140127
  3. VITAMIN D3 [Concomitant]
  4. CALCIUM 600 + D3 [Concomitant]
  5. PREDMILD [Concomitant]
  6. NASCORAL [Concomitant]
  7. KLONOPIN [Concomitant]
  8. ZOCOR [Concomitant]
  9. PAMOX [Concomitant]
  10. LOSARTAN [Concomitant]
  11. MECLIZINE [Concomitant]
  12. TRAMANOL HCL [Concomitant]
  13. POTASSIUM [Concomitant]
  14. SIMBRINDA [Concomitant]
  15. LEVOTHYROXIN [Concomitant]
  16. NORTRIPLINE HCL [Concomitant]
  17. SIMVASTATIN [Concomitant]
  18. DIAZEPAM [Concomitant]
  19. ASPIRIN [Concomitant]
  20. TYLENOL [Concomitant]

REACTIONS (2)
  - Dizziness [None]
  - Nausea [None]
